FAERS Safety Report 6541889-X (Version None)
Quarter: 2010Q1

REPORT INFORMATION
  Report Type: 
  Country: None (occurrence: None)
  Receive Date: 20100119
  Receipt Date: 20100113
  Transmission Date: 20100710
  Serious: Yes (Death)
  Sender: FDA-Public Use
  Company Number: US-CELGENEUS-163-21880-09120294

PATIENT
  Sex: Male

DRUGS (4)
  1. REVLIMID [Suspect]
     Indication: MULTIPLE MYELOMA
     Route: 048
     Dates: start: 20091001, end: 20091101
  2. REVLIMID [Suspect]
     Route: 048
     Dates: start: 20080701, end: 20080101
  3. REVLIMID [Suspect]
     Route: 048
     Dates: start: 20080801, end: 20090101
  4. REVLIMID [Suspect]
     Route: 048
     Dates: start: 20090401, end: 20090101

REACTIONS (1)
  - PANCREATIC CARCINOMA [None]
